FAERS Safety Report 5887969 (Version 4)
Quarter: 2016Q1

REPORT INFORMATION
  Report Type: Spontaneous
  Country: FR (occurrence: FR)
  Receive Date: 20050614
  Receipt Date: 20160205
  Transmission Date: 20160526
  Serious: Yes (Congenital Anomaly, Other)
  Sender: FDA-Public Use
  Company Number: FR-BRISTOL-MYERS SQUIBB COMPANY-12992780

PATIENT

DRUGS (2)
  1. DAFLON [Suspect]
     Active Substance: DIOSMIN\HESPERIDIN
     Indication: PRODUCT USED FOR UNKNOWN INDICATION
     Dosage: UNK
     Route: 064
  2. PRAVASTATIN SODIUM. [Suspect]
     Active Substance: PRAVASTATIN SODIUM
     Indication: PRODUCT USED FOR UNKNOWN INDICATION
     Dosage: UNK
     Route: 064
     Dates: end: 200405

REACTIONS (5)
  - Cleft lip and palate [Unknown]
  - Hydrocephalus [Unknown]
  - Clinodactyly [Unknown]
  - Congenital cerebellar agenesis [Unknown]
  - Foetal exposure during pregnancy [Unknown]
